FAERS Safety Report 25493584 (Version 1)
Quarter: 2025Q2

REPORT INFORMATION
  Report Type: Spontaneous
  Country: US (occurrence: US)
  Receive Date: 20250630
  Receipt Date: 20250630
  Transmission Date: 20250717
  Serious: No
  Sender: MYLAN
  Company Number: US-MYLANLABS-2025M1054084

PATIENT
  Sex: Female

DRUGS (44)
  1. ZOLOFT [Suspect]
     Active Substance: SERTRALINE HYDROCHLORIDE
     Indication: Anxiety
  2. ZOLOFT [Suspect]
     Active Substance: SERTRALINE HYDROCHLORIDE
     Indication: Bipolar disorder
     Route: 065
  3. ZOLOFT [Suspect]
     Active Substance: SERTRALINE HYDROCHLORIDE
     Indication: Depression
     Route: 065
  4. ZOLOFT [Suspect]
     Active Substance: SERTRALINE HYDROCHLORIDE
  5. XOLAIR [Concomitant]
     Active Substance: OMALIZUMAB
  6. XOLAIR [Concomitant]
     Active Substance: OMALIZUMAB
     Route: 065
  7. XOLAIR [Concomitant]
     Active Substance: OMALIZUMAB
     Route: 065
  8. XOLAIR [Concomitant]
     Active Substance: OMALIZUMAB
  9. ZYRTEC [Concomitant]
     Active Substance: CETIRIZINE HYDROCHLORIDE
  10. ZYRTEC [Concomitant]
     Active Substance: CETIRIZINE HYDROCHLORIDE
     Route: 065
  11. ZYRTEC [Concomitant]
     Active Substance: CETIRIZINE HYDROCHLORIDE
     Route: 065
  12. ZYRTEC [Concomitant]
     Active Substance: CETIRIZINE HYDROCHLORIDE
  13. ROBAXIN [Concomitant]
     Active Substance: METHOCARBAMOL
  14. ROBAXIN [Concomitant]
     Active Substance: METHOCARBAMOL
     Route: 065
  15. ROBAXIN [Concomitant]
     Active Substance: METHOCARBAMOL
     Route: 065
  16. ROBAXIN [Concomitant]
     Active Substance: METHOCARBAMOL
  17. TOPROL XL [Concomitant]
     Active Substance: METOPROLOL SUCCINATE
  18. TOPROL XL [Concomitant]
     Active Substance: METOPROLOL SUCCINATE
     Route: 065
  19. TOPROL XL [Concomitant]
     Active Substance: METOPROLOL SUCCINATE
     Route: 065
  20. TOPROL XL [Concomitant]
     Active Substance: METOPROLOL SUCCINATE
  21. LAMICTAL [Concomitant]
     Active Substance: LAMOTRIGINE
  22. LAMICTAL [Concomitant]
     Active Substance: LAMOTRIGINE
     Route: 065
  23. LAMICTAL [Concomitant]
     Active Substance: LAMOTRIGINE
     Route: 065
  24. LAMICTAL [Concomitant]
     Active Substance: LAMOTRIGINE
  25. MELATONIN [Concomitant]
     Active Substance: MELATONIN
  26. MELATONIN [Concomitant]
     Active Substance: MELATONIN
     Route: 065
  27. MELATONIN [Concomitant]
     Active Substance: MELATONIN
     Route: 065
  28. MELATONIN [Concomitant]
     Active Substance: MELATONIN
  29. ATARAX [Concomitant]
     Active Substance: HYDROXYZINE HYDROCHLORIDE
  30. ATARAX [Concomitant]
     Active Substance: HYDROXYZINE HYDROCHLORIDE
     Route: 065
  31. ATARAX [Concomitant]
     Active Substance: HYDROXYZINE HYDROCHLORIDE
     Route: 065
  32. ATARAX [Concomitant]
     Active Substance: HYDROXYZINE HYDROCHLORIDE
  33. PEPCID [Concomitant]
     Active Substance: FAMOTIDINE
  34. PEPCID [Concomitant]
     Active Substance: FAMOTIDINE
     Route: 065
  35. PEPCID [Concomitant]
     Active Substance: FAMOTIDINE
     Route: 065
  36. PEPCID [Concomitant]
     Active Substance: FAMOTIDINE
  37. LEXAPRO [Concomitant]
     Active Substance: ESCITALOPRAM OXALATE
  38. LEXAPRO [Concomitant]
     Active Substance: ESCITALOPRAM OXALATE
     Route: 065
  39. LEXAPRO [Concomitant]
     Active Substance: ESCITALOPRAM OXALATE
     Route: 065
  40. LEXAPRO [Concomitant]
     Active Substance: ESCITALOPRAM OXALATE
  41. EPIPEN [Concomitant]
     Active Substance: EPINEPHRINE
  42. EPIPEN [Concomitant]
     Active Substance: EPINEPHRINE
     Route: 065
  43. EPIPEN [Concomitant]
     Active Substance: EPINEPHRINE
     Route: 065
  44. EPIPEN [Concomitant]
     Active Substance: EPINEPHRINE

REACTIONS (2)
  - Mental disorder [Recovered/Resolved]
  - Drug ineffective [Recovered/Resolved]
